FAERS Safety Report 15358161 (Version 1)
Quarter: 2018Q3

REPORT INFORMATION
  Report Type: Spontaneous
  Country: CA (occurrence: US)
  Receive Date: 20180906
  Receipt Date: 20180906
  Transmission Date: 20181010
  Serious: No
  Sender: FDA-Public Use
  Company Number: CA-PERRIGO-17US030031

PATIENT
  Sex: Female
  Weight: 68.27 kg

DRUGS (1)
  1. MINOXIDIL. [Suspect]
     Active Substance: MINOXIDIL
     Indication: ALOPECIA
     Dosage: 1 ML, WEEKLY
     Route: 061
     Dates: start: 2017, end: 20171115

REACTIONS (2)
  - Inappropriate schedule of drug administration [Recovered/Resolved]
  - Expired product administered [Recovered/Resolved]

NARRATIVE: CASE EVENT DATE: 2017
